FAERS Safety Report 10780538 (Version 1)
Quarter: 2015Q1

REPORT INFORMATION
  Report Type: Spontaneous
  Country: US (occurrence: US)
  Receive Date: 20150210
  Receipt Date: 20150210
  Transmission Date: 20150721
  Serious: No
  Sender: FDA-Public Use
  Company Number: US-GLAXOSMITHKLINE-A1090476A

PATIENT

DRUGS (1)
  1. TYKERB [Suspect]
     Active Substance: LAPATINIB DITOSYLATE
     Indication: BREAST CANCER
     Dosage: 250 MG
     Route: 048
     Dates: start: 20140707

REACTIONS (7)
  - Rash [Unknown]
  - Rash erythematous [Unknown]
  - Skin discolouration [Unknown]
  - Upper-airway cough syndrome [Unknown]
  - Chest discomfort [Unknown]
  - Local swelling [Unknown]
  - Rash papular [Unknown]

NARRATIVE: CASE EVENT DATE: 20140707
